FAERS Safety Report 6786024-8 (Version None)
Quarter: 2010Q2

REPORT INFORMATION
  Report Type: 
  Country: None (occurrence: None)
  Receive Date: 20100623
  Receipt Date: 20100609
  Transmission Date: 20101027
  Serious: Yes (Hospitalization, Other)
  Sender: FDA-Public Use
  Company Number: PHHY2010BR37982

PATIENT
  Sex: Female

DRUGS (4)
  1. DIOVAN [Suspect]
     Indication: HYPERTENSION
     Dosage: 1 DF, DAILY (160 MG)
     Route: 048
     Dates: start: 20080101
  2. DIOVAN [Suspect]
     Dosage: 320 MG, UNK
  3. EPOETIN [Concomitant]
     Indication: BLOOD ERYTHROPOIETIN DECREASED
     Dosage: 4000 IU, UNK,3 APPLICATIONS PER WEEK
     Route: 058
     Dates: start: 20080101
  4. CALCIUM W/VITAMINS [Concomitant]
     Indication: HYPOVITAMINOSIS
     Dosage: 1 DF, PER DAY
     Route: 048
     Dates: start: 20080101

REACTIONS (5)
  - BLOOD PRESSURE INADEQUATELY CONTROLLED [None]
  - BLOOD PRESSURE SYSTOLIC INCREASED [None]
  - HAEMODIALYSIS [None]
  - PERICARDIAL DRAINAGE [None]
  - PERICARDIAL EFFUSION [None]
